FAERS Safety Report 9745691 (Version 6)
Quarter: 2014Q1

REPORT INFORMATION
  Report Type: Spontaneous
  Country: US (occurrence: US)
  Receive Date: 20131211
  Receipt Date: 20140326
  Transmission Date: 20141002
  Serious: Yes (Death, Hospitalization)
  Sender: FDA-Public Use
  Company Number: US-CELGENEUS-163-21880-13120660

PATIENT
  Age: 45 Year
  Sex: Male
  Weight: 67.7 kg

DRUGS (13)
  1. REVLIMID [Suspect]
     Indication: PLASMA CELL MYELOMA
     Dosage: 25 MILLIGRAM
     Route: 048
     Dates: start: 20131023, end: 20131120
  2. DEXAMETHASONE [Suspect]
     Indication: PLASMA CELL MYELOMA
     Dosage: 40 MILLIGRAM
     Route: 048
     Dates: start: 20131023, end: 20131121
  3. DEXAMETHASONE [Suspect]
     Indication: PROPHYLAXIS
     Route: 065
     Dates: start: 20131023, end: 20131023
  4. SAR650984 [Suspect]
     Indication: PLASMA CELL MYELOMA
     Dosage: 10 MILLIGRAM/KILOGRAM
     Route: 041
     Dates: start: 20131023, end: 20131023
  5. SAR650984 [Suspect]
     Dosage: 10 MILLIGRAM/KILOGRAM
     Route: 041
     Dates: start: 20131121, end: 20131121
  6. SODIUM CHLORIDE [Concomitant]
     Indication: ADJUVANT THERAPY
     Route: 041
     Dates: start: 20131106, end: 20131107
  7. OXYCODONE [Concomitant]
     Indication: ADJUVANT THERAPY
     Route: 065
     Dates: start: 20131106, end: 20131106
  8. POTASSIUM CHLORIDE [Concomitant]
     Indication: ADJUVANT THERAPY
     Route: 065
     Dates: start: 20131106, end: 20131107
  9. COMPAZINE [Concomitant]
     Indication: PROPHYLAXIS
     Route: 065
     Dates: start: 20131023, end: 20131030
  10. BENADRYL [Concomitant]
     Indication: PROPHYLAXIS
     Route: 048
     Dates: start: 20131023, end: 20131024
  11. BENADRYL [Concomitant]
     Route: 065
     Dates: start: 20131023, end: 20131023
  12. TYLENOL [Concomitant]
     Indication: PROPHYLAXIS
     Route: 048
     Dates: start: 20131023, end: 20131023
  13. PEPCID [Concomitant]
     Indication: PROPHYLAXIS
     Route: 065
     Dates: start: 20131023, end: 20131023

REACTIONS (2)
  - Plasma cell myeloma [Fatal]
  - Hypotension [Recovered/Resolved]
